FAERS Safety Report 9232784 (Version 2)
Quarter: 2013Q2

REPORT INFORMATION
  Report Type: Spontaneous
  Country: AE (occurrence: AE)
  Receive Date: 20130416
  Receipt Date: 20130516
  Transmission Date: 20140414
  Serious: Yes (Other)
  Sender: FDA-Public Use
  Company Number: AE-JNJFOC-20130406131

PATIENT
  Age: 23 Year
  Sex: Male
  Weight: 95.7 kg

DRUGS (1)
  1. STELARA [Suspect]
     Indication: PSORIASIS
     Dosage: 4 DOSES RECEIVED
     Route: 058
     Dates: start: 20120311, end: 20121222

REACTIONS (7)
  - Hepatic enzyme increased [Recovered/Resolved]
  - Ocular icterus [Unknown]
  - Pyrexia [Unknown]
  - Nasopharyngitis [Unknown]
  - Nausea [Unknown]
  - Vomiting [Unknown]
  - Diarrhoea [Unknown]
